FAERS Safety Report 22017624 (Version 2)
Quarter: 2024Q1

REPORT INFORMATION
  Report Type: Spontaneous
  Country: JP (occurrence: JP)
  Receive Date: 20230221
  Receipt Date: 20240123
  Transmission Date: 20240410
  Serious: Yes (Other)
  Sender: FDA-Public Use
  Company Number: JP-TAKEDA-2023TJP000233

PATIENT
  Age: 7 Year
  Sex: Female
  Weight: 24.6 kg

DRUGS (1)
  1. LEUPLIN [Suspect]
     Active Substance: LEUPROLIDE ACETATE
     Indication: Precocious puberty
     Dosage: 2256 MICROGRAM?LEUPLIN FOR INJECTION 3.75 MG
     Route: 058
     Dates: start: 20220226, end: 20221217

REACTIONS (4)
  - Injection site ulcer [Recovering/Resolving]
  - Injection site abscess [Recovering/Resolving]
  - Swelling [Recovering/Resolving]
  - Effusion [Recovering/Resolving]

NARRATIVE: CASE EVENT DATE: 20221201
